FAERS Safety Report 14820626 (Version 2)
Quarter: 2019Q2

REPORT INFORMATION
  Report Type: Spontaneous
  Country: US (occurrence: US)
  Receive Date: 20180427
  Receipt Date: 20190611
  Transmission Date: 20190711
  Serious: Yes (Other)
  Sender: FDA-Public Use
  Company Number: US-PFIZER INC-2018174041

PATIENT
  Sex: Male

DRUGS (20)
  1. PRILOSEC [Suspect]
     Active Substance: OMEPRAZOLE MAGNESIUM
  2. METHIMAZOLE. [Concomitant]
     Active Substance: METHIMAZOLE
     Indication: HYPERTHYROIDISM
     Dosage: UNK
     Dates: start: 2011, end: 2014
  3. NEXIUM [Suspect]
     Active Substance: ESOMEPRAZOLE MAGNESIUM
     Indication: GASTROOESOPHAGEAL REFLUX DISEASE
     Dosage: 40 MG, ONCE DAILY
     Dates: start: 2002, end: 2014
  4. SINGULAIR [Concomitant]
     Active Substance: MONTELUKAST SODIUM
     Indication: ASTHMA
     Dosage: UNK
     Dates: start: 201009, end: 201205
  5. PROTONIX [Suspect]
     Active Substance: PANTOPRAZOLE SODIUM
  6. PREVACID [Suspect]
     Active Substance: LANSOPRAZOLE
  7. LANSOPRAZOLE. [Suspect]
     Active Substance: LANSOPRAZOLE
     Indication: GASTROOESOPHAGEAL REFLUX DISEASE
     Dosage: 30 MG, ONCE DAILY
     Dates: start: 20140311, end: 20141205
  8. LISINOPRIL. [Concomitant]
     Active Substance: LISINOPRIL
     Indication: HYPERTENSION
     Dosage: UNK
     Dates: start: 201109, end: 2012
  9. TRAMADOL. [Concomitant]
     Active Substance: TRAMADOL
     Indication: PAIN MANAGEMENT
     Dosage: UNK
     Dates: start: 200801, end: 200912
  10. PREVACID 24 HR [Suspect]
     Active Substance: LANSOPRAZOLE
  11. NEXIUM 24HR [Suspect]
     Active Substance: ESOMEPRAZOLE MAGNESIUM
  12. PRILOSEC OTC [Suspect]
     Active Substance: OMEPRAZOLE MAGNESIUM
  13. BENICAR [Concomitant]
     Active Substance: OLMESARTAN MEDOXOMIL
     Indication: HYPERTENSION
     Dosage: UNK
     Dates: start: 200801, end: 200910
  14. DEXILANT [Suspect]
     Active Substance: DEXLANSOPRAZOLE
  15. ESOMEPRAZOLE. [Suspect]
     Active Substance: ESOMEPRAZOLE MAGNESIUM
     Indication: GASTROOESOPHAGEAL REFLUX DISEASE
     Dosage: 40 MG, ONCE DAILY
     Dates: start: 20150311
  16. VIAGRA [Concomitant]
     Active Substance: SILDENAFIL CITRATE
     Indication: SEXUAL DYSFUNCTION
     Dosage: UNK
     Dates: start: 200802, end: 2012
  17. CARVEDILOL. [Concomitant]
     Active Substance: CARVEDILOL
     Indication: HYPERTENSION
     Dosage: UNK
     Dates: start: 2010, end: 2014
  18. METOPROLOL. [Concomitant]
     Active Substance: METOPROLOL
     Indication: HYPERTENSION
     Dosage: UNK
     Dates: start: 200802, end: 201101
  19. VITAMIN D NOS [Concomitant]
     Active Substance: VITAMIN D NOS
     Dosage: UNK
     Dates: start: 20130729
  20. INDAPAMIDE. [Concomitant]
     Active Substance: INDAPAMIDE
     Indication: HYPERTENSION
     Dosage: UNK
     Dates: start: 2011, end: 2014

REACTIONS (7)
  - Panic disorder [Unknown]
  - Renal failure [Unknown]
  - Bipolar disorder [Unknown]
  - Chronic kidney disease [Not Recovered/Not Resolved]
  - Acute kidney injury [Unknown]
  - Depression [Unknown]
  - Psychosexual disorder [Unknown]

NARRATIVE: CASE EVENT DATE: 20120920
